FAERS Safety Report 19128762 (Version 1)
Quarter: 2021Q2

REPORT INFORMATION
  Report Type: Report from Study
  Country: DE (occurrence: DE)
  Receive Date: 20210413
  Receipt Date: 20210413
  Transmission Date: 20210717
  Serious: Yes (Other)
  Sender: FDA-Public Use
  Company Number: DE-PFIZER INC-2021385231

PATIENT
  Age: 26 Year
  Sex: Female

DRUGS (6)
  1. NORDAZEPAM [Suspect]
     Active Substance: NORDAZEPAM
  2. LEVOMETHADONE [Suspect]
     Active Substance: LEVOMETHADONE
  3. LORAZEPAM. [Suspect]
     Active Substance: LORAZEPAM
  4. CLONAZEPAM. [Suspect]
     Active Substance: CLONAZEPAM
  5. PREGABALIN. [Suspect]
     Active Substance: PREGABALIN
  6. DIAZEPAM. [Suspect]
     Active Substance: DIAZEPAM

REACTIONS (7)
  - Mental impairment [Unknown]
  - Dysarthria [Unknown]
  - Bradyphrenia [Unknown]
  - Drug screen positive [Unknown]
  - Restlessness [Unknown]
  - Gait disturbance [Unknown]
  - Drug abuse [Unknown]
